FAERS Safety Report 22096712 (Version 1)
Quarter: 2023Q1

REPORT INFORMATION
  Report Type: Spontaneous
  Country: US (occurrence: US)
  Receive Date: 20230315
  Receipt Date: 20230315
  Transmission Date: 20230418
  Serious: No
  Sender: FDA-Public Use
  Company Number: US-CHIESI-2023CHF01060

PATIENT
  Sex: Male
  Weight: 82 kg

DRUGS (8)
  1. FERRIPROX [Suspect]
     Active Substance: DEFERIPRONE
     Indication: Haemochromatosis
     Dosage: 4000 MILLIGRAM, BID
     Route: 048
     Dates: start: 20230131, end: 202302
  2. FERRIPROX [Suspect]
     Active Substance: DEFERIPRONE
     Indication: Transfusion
  3. FERRIPROX [Suspect]
     Active Substance: DEFERIPRONE
     Indication: Pyruvate kinase deficiency anaemia
  4. FERRIPROX [Suspect]
     Active Substance: DEFERIPRONE
     Indication: Anaemia
  5. FERRIPROX [Suspect]
     Active Substance: DEFERIPRONE
     Indication: Enzyme abnormality
  6. ASPIRIN [Concomitant]
     Active Substance: ASPIRIN
     Indication: Product used for unknown indication
     Dosage: UNK
  7. DESFERAL [Concomitant]
     Active Substance: DEFEROXAMINE MESYLATE
     Indication: Product used for unknown indication
     Dosage: UNK
  8. MOMETASONE FUROATE [Concomitant]
     Active Substance: MOMETASONE FUROATE
     Indication: Product used for unknown indication
     Dosage: UNK

REACTIONS (1)
  - Alanine aminotransferase increased [Recovering/Resolving]
